FAERS Safety Report 8833903 (Version 1)
Quarter: 2012Q4

REPORT INFORMATION
  Report Type: 
  Country: TR (occurrence: TR)
  Receive Date: 20121010
  Receipt Date: 20121010
  Transmission Date: 20130627
  Serious: Yes (Other)
  Sender: FDA-Public Use
  Company Number: PHHY2012TR088720

PATIENT
  Age: 36 Year
  Sex: Male

DRUGS (3)
  1. IRINOTECAN [Suspect]
     Indication: COLON CANCER
  2. BEVACIZUMAB [Suspect]
     Indication: COLON CANCER
  3. 5-FU [Concomitant]
     Indication: COLON CANCER

REACTIONS (2)
  - Dermatitis acneiform [Unknown]
  - Furuncle [Unknown]
